FAERS Safety Report 9742294 (Version 1)
Quarter: 2013Q4

REPORT INFORMATION
  Report Type: Spontaneous
  Country: GB (occurrence: GB)
  Receive Date: 20131210
  Receipt Date: 20131210
  Transmission Date: 20140711
  Serious: Yes (Other)
  Sender: FDA-Public Use
  Company Number: GB-SHIRE-ALL1-2013-08331

PATIENT
  Age: 14 Year
  Sex: Male
  Weight: 50 kg

DRUGS (2)
  1. ELVANSE [Suspect]
     Indication: ATTENTION DEFICIT/HYPERACTIVITY DISORDER
     Dosage: 50 MG 1X/DAY:QD
     Route: 048
     Dates: start: 20131112, end: 20131113
  2. ELVANSE [Suspect]
     Dosage: 30 MG, UNKNOWN
     Route: 048

REACTIONS (3)
  - Social avoidant behaviour [Recovered/Resolved]
  - Mydriasis [Recovered/Resolved]
  - Aggression [Not Recovered/Not Resolved]
